FAERS Safety Report 11548183 (Version 3)
Quarter: 2016Q2

REPORT INFORMATION
  Report Type: Spontaneous
  Country: US (occurrence: US)
  Receive Date: 20150924
  Receipt Date: 20160412
  Transmission Date: 20160815
  Serious: Yes (Hospitalization, Other)
  Sender: FDA-Public Use
  Company Number: US-INCYTE CORPORATION-2015IN000853

PATIENT
  Age: 72 Year
  Sex: Female
  Weight: 76.6 kg

DRUGS (4)
  1. JAKAFI [Suspect]
     Active Substance: RUXOLITINIB
     Indication: MYELOFIBROSIS
     Dosage: 15 MG, BID
     Route: 048
     Dates: start: 20140205, end: 201510
  2. LORAZEPAM. [Concomitant]
     Active Substance: LORAZEPAM
  3. JAKAFI [Suspect]
     Active Substance: RUXOLITINIB
     Dosage: 10 MG
     Route: 048
  4. METOPROLOL SUCCINATE ER [Concomitant]
     Active Substance: METOPROLOL SUCCINATE

REACTIONS (6)
  - Anaemia [Recovering/Resolving]
  - Fatigue [Unknown]
  - Alopecia [Recovering/Resolving]
  - Dyspnoea [Unknown]
  - Blood iron decreased [Unknown]
  - Eructation [Unknown]

NARRATIVE: CASE EVENT DATE: 20150227
